FAERS Safety Report 5179690-4 (Version None)
Quarter: 2006Q4

REPORT INFORMATION
  Report Type: 
  Country: None (occurrence: None)
  Receive Date: 20061212
  Receipt Date: 20061204
  Transmission Date: 20070319
  Serious: Yes (Other)
  Sender: FDA-Public Use
  Company Number: 200612AGG00525

PATIENT
  Age: 72 Year
  Sex: Male

DRUGS (3)
  1. AGGRASTAT [Suspect]
     Indication: CORONARY ANGIOPLASTY
     Dosage: IV (ICH 042)
     Route: 042
     Dates: start: 20061115, end: 20061115
  2. HEPARIN [Concomitant]
  3. SIMVASTATIN [Concomitant]

REACTIONS (6)
  - COAGULATION TIME PROLONGED [None]
  - HAEMATOMA [None]
  - HAEMOPTYSIS [None]
  - OVERDOSE [None]
  - PUNCTURE SITE PAIN [None]
  - VASCULAR INJURY [None]
